FAERS Safety Report 17223159 (Version 2)
Quarter: 2023Q1

REPORT INFORMATION
  Report Type: Report from Study
  Country: CA (occurrence: None)
  Receive Date: 20200102
  Receipt Date: 20230127
  Transmission Date: 20230418
  Serious: Yes (Other)
  Sender: FDA-Public Use
  Company Number: CA-ORION CORPORATION ORION PHARMA-TREX2019-6216

PATIENT
  Age: 35 Year
  Sex: Female

DRUGS (17)
  1. METHOTREXATE [Suspect]
     Active Substance: METHOTREXATE
     Indication: Product used for unknown indication
     Route: 065
  2. COSENTYX [Suspect]
     Active Substance: SECUKINUMAB
     Indication: Ankylosing spondylitis
     Route: 058
  3. COSENTYX [Suspect]
     Active Substance: SECUKINUMAB
     Route: 058
  4. COSENTYX [Suspect]
     Active Substance: SECUKINUMAB
     Route: 058
  5. COSENTYX [Suspect]
     Active Substance: SECUKINUMAB
     Route: 058
  6. COSENTYX [Suspect]
     Active Substance: SECUKINUMAB
     Route: 058
  7. COSENTYX [Suspect]
     Active Substance: SECUKINUMAB
     Route: 058
  8. COSENTYX [Suspect]
     Active Substance: SECUKINUMAB
     Route: 058
  9. CELEBREX [Concomitant]
     Active Substance: CELECOXIB
     Route: 065
  10. ENBREL [Concomitant]
     Active Substance: ETANERCEPT
     Route: 065
  11. HUMIRA [Concomitant]
     Active Substance: ADALIMUMAB
     Route: 065
  12. NAPROXEN [Concomitant]
     Active Substance: NAPROXEN
     Route: 065
  13. PANTOPRAZOLE SODIUM [Concomitant]
     Active Substance: PANTOPRAZOLE SODIUM
     Route: 065
  14. STELARA [Concomitant]
     Active Substance: USTEKINUMAB
     Route: 065
  15. SULFASALAZINE [Concomitant]
     Active Substance: SULFASALAZINE
     Route: 065
  16. TYLENOL [Concomitant]
     Active Substance: ACETAMINOPHEN
     Route: 065
  17. ARTHROTEC [Concomitant]
     Active Substance: DICLOFENAC SODIUM\MISOPROSTOL
     Route: 065

REACTIONS (11)
  - Product prescribing error [Not Recovered/Not Resolved]
  - Off label use [Not Recovered/Not Resolved]
  - Cellulitis [Not Recovered/Not Resolved]
  - Impetigo [Not Recovered/Not Resolved]
  - Infection [Not Recovered/Not Resolved]
  - Skin infection [Not Recovered/Not Resolved]
  - Upper respiratory tract infection [Not Recovered/Not Resolved]
  - Ankylosing spondylitis [Not Recovered/Not Resolved]
  - Hypotension [Not Recovered/Not Resolved]
  - Inflammation [Not Recovered/Not Resolved]
  - Musculoskeletal stiffness [Not Recovered/Not Resolved]
